FAERS Safety Report 9603018 (Version 5)
Quarter: 2013Q4

REPORT INFORMATION
  Report Type: Report from Study
  Country: US (occurrence: US)
  Receive Date: 20131007
  Receipt Date: 20131029
  Transmission Date: 20140711
  Serious: Yes (Death)
  Sender: FDA-Public Use
  Company Number: US-ROCHE-1282527

PATIENT
  Age: 49 Year
  Sex: Female
  Weight: 67.56 kg

DRUGS (11)
  1. TRASTUZUMAB [Suspect]
     Indication: BREAST CANCER METASTATIC
     Dosage: DATE OF MOST RECENT DOSE: 19/SEP/2013
     Route: 042
     Dates: start: 20130829
  2. PERTUZUMAB [Suspect]
     Indication: BREAST CANCER METASTATIC
     Dosage: DATE OF MOST RECENT DOSE: 19/SEP/2013
     Route: 042
     Dates: start: 20130829
  3. LUNESTA [Concomitant]
     Indication: INSOMNIA
     Route: 065
     Dates: start: 20130517, end: 20131022
  4. SENOKOT [Concomitant]
     Indication: CONSTIPATION
     Route: 065
     Dates: start: 20130823, end: 20131022
  5. CLARITIN [Concomitant]
     Indication: LACRIMATION INCREASED
     Route: 065
     Dates: start: 20130512, end: 20131022
  6. OXYCONTIN [Concomitant]
     Indication: FACIAL PAIN
     Route: 065
     Dates: start: 20130805, end: 20130923
  7. OXYCODONE [Concomitant]
     Indication: FACIAL PAIN
     Route: 065
     Dates: start: 20130730, end: 20130923
  8. OXYCODONE [Concomitant]
     Route: 065
     Dates: start: 20130923, end: 20131022
  9. EFFEXOR [Concomitant]
     Indication: HOT FLUSH
     Route: 065
     Dates: start: 20130512, end: 20131022
  10. DECADRON [Concomitant]
     Route: 065
     Dates: start: 20130923, end: 20131022
  11. LACTULOSE [Concomitant]
     Route: 065
     Dates: start: 20131010, end: 20131022

REACTIONS (1)
  - Disease progression [Fatal]
